FAERS Safety Report 18228168 (Version 9)
Quarter: 2021Q2

REPORT INFORMATION
  Report Type: Spontaneous
  Country: US (occurrence: US)
  Receive Date: 20200903
  Receipt Date: 20210526
  Transmission Date: 20210717
  Serious: Yes (Hospitalization, Other)
  Sender: FDA-Public Use
  Company Number: US-HORIZON-TEP-1685-2020

PATIENT

DRUGS (10)
  1. TAPAZOLE [Concomitant]
     Active Substance: METHIMAZOLE
  2. HYDROCHLOROTHIAZIDE. [Concomitant]
     Active Substance: HYDROCHLOROTHIAZIDE
     Indication: HYPERTENSION
  3. VITMAIN B1 [Concomitant]
     Dosage: AS NEEDED
  4. TEPEZZA [Suspect]
     Active Substance: TEPROTUMUMAB-TRBW
     Indication: ENDOCRINE OPHTHALMOPATHY
     Dosage: 20MG/KG IV Q3WEEKS
     Route: 042
     Dates: start: 20200519
  5. DEPAKOTE [Concomitant]
     Active Substance: DIVALPROEX SODIUM
     Indication: PRODUCT USED FOR UNKNOWN INDICATION
  6. ASPIRIN. [Concomitant]
     Active Substance: ASPIRIN
     Dosage: 81MG/DAILY
  7. CRESTOR [Concomitant]
     Active Substance: ROSUVASTATIN CALCIUM
  8. SIMVASTATIN. [Concomitant]
     Active Substance: SIMVASTATIN
     Dosage: 20MG DAILY
  9. MELATONIN [Concomitant]
     Active Substance: MELATONIN
     Dosage: AS NEEDED
  10. METHIMAZOLE. [Concomitant]
     Active Substance: METHIMAZOLE
     Indication: PRODUCT USED FOR UNKNOWN INDICATION

REACTIONS (18)
  - Confabulation [Unknown]
  - Delusion [Unknown]
  - Catatonia [Recovering/Resolving]
  - Confusional state [Unknown]
  - Memory impairment [Unknown]
  - Cerebral haematoma [Recovering/Resolving]
  - Pulmonary embolism [Recovering/Resolving]
  - Dementia [Recovering/Resolving]
  - Encephalitis autoimmune [Recovering/Resolving]
  - Cognitive disorder [Recovered/Resolved]
  - Amnesia [Unknown]
  - Delirium [Unknown]
  - Encephalopathy [Unknown]
  - Abnormal behaviour [Unknown]
  - Mania [Unknown]
  - Cerebral amyloid angiopathy [Not Recovered/Not Resolved]
  - Aphasia [Recovering/Resolving]
  - Parkinsonism [Unknown]
